FAERS Safety Report 14738387 (Version 2)
Quarter: 2018Q2

REPORT INFORMATION
  Report Type: Spontaneous
  Country: JP (occurrence: JP)
  Receive Date: 20180409
  Receipt Date: 20180619
  Transmission Date: 20180711
  Serious: Yes (Hospitalization, Other)
  Sender: FDA-Public Use
  Company Number: JP-PFIZER INC-2018069216

PATIENT
  Age: 58 Year
  Sex: Female

DRUGS (2)
  1. FEMARA [Concomitant]
     Active Substance: LETROZOLE
     Indication: BREAST CANCER RECURRENT
     Dosage: 2.5 MG, ONCE DAILY
     Route: 048
     Dates: start: 20180209, end: 20180228
  2. IBRANCE [Suspect]
     Active Substance: PALBOCICLIB
     Indication: BREAST CANCER RECURRENT
     Dosage: 100 MG, ONCE DAILY
     Route: 048
     Dates: start: 20180209, end: 20180215

REACTIONS (4)
  - Condition aggravated [Recovering/Resolving]
  - Platelet count decreased [Recovered/Resolved]
  - White blood cell count decreased [Recovered/Resolved]
  - Hydronephrosis [Recovering/Resolving]

NARRATIVE: CASE EVENT DATE: 201802
